FAERS Safety Report 8257636-X (Version None)
Quarter: 2012Q2

REPORT INFORMATION
  Report Type: 
  Country: None (occurrence: None)
  Receive Date: 20120403
  Receipt Date: 20120328
  Transmission Date: 20120825
  Serious: Yes (Hospitalization)
  Sender: FDA-Public Use
  Company Number: JP-MERCK-1204USA00186

PATIENT
  Age: 71 Year
  Sex: Male

DRUGS (3)
  1. LIVALO [Concomitant]
     Dosage: DAILY DOSAGE UNKNOWN
     Route: 048
  2. TAMSULOSIN HCL [Concomitant]
     Dosage: DAILY DOSAGE UNKNOWN
     Route: 048
  3. JANUVIA [Suspect]
     Dosage: DAILY DOSAGE UNKNOWN
     Route: 048
     Dates: start: 20110201

REACTIONS (2)
  - DIZZINESS [None]
  - DIZZINESS POSTURAL [None]
